FAERS Safety Report 18522113 (Version 1)
Quarter: 2020Q4

REPORT INFORMATION
  Report Type: Spontaneous
  Country: AU (occurrence: AU)
  Receive Date: 20201119
  Receipt Date: 20201119
  Transmission Date: 20210114
  Serious: Yes (Other)
  Sender: FDA-Public Use
  Company Number: AU-SA-2019SA023800

PATIENT

DRUGS (15)
  1. FLUTICASONE PROPIONATE/SALMETEROL XINAFOATE [Suspect]
     Active Substance: FLUTICASONE PROPIONATE\SALMETEROL XINAFOATE
  2. EZETIMIBE/SIMVASTATIN [Suspect]
     Active Substance: EZETIMIBE\SIMVASTATIN
     Dosage: UNK UNK, QD 10/80 MG, AT MORNING
  3. FUROSEMIDE. [Suspect]
     Active Substance: FUROSEMIDE
     Dosage: 40 MG, BID
  4. LOPERAMIDE [Suspect]
     Active Substance: LOPERAMIDE
     Dosage: UNK UNK, PRN
  5. THIAMINE HYDROCHLORIDE. [Suspect]
     Active Substance: THIAMINE HYDROCHLORIDE
     Dosage: 100 MG, QD 100 MG, AT MORNING
  6. GLYCERYL TRINITRATE [Suspect]
     Active Substance: NITROGLYCERIN
     Dosage: UNK UNK, PRN
  7. DIGOXIN. [Suspect]
     Active Substance: DIGOXIN
     Dosage: 62.5 UG, QD  MORNING
  8. ENTRESTO [Suspect]
     Active Substance: SACUBITRIL\VALSARTAN
     Dosage: UNK, BID 24/26MG AT MORNING 49/51MG AT NIGHT
  9. SALBUTAMOL SULFATE [Suspect]
     Active Substance: ALBUTEROL SULFATE
  10. BISOPROLOL FUMARATE. [Suspect]
     Active Substance: BISOPROLOL FUMARATE
     Dosage: 1.25 MG, BID
  11. SPIRONOLACTONE. [Suspect]
     Active Substance: SPIRONOLACTONE
     Dosage: 12.5 MG, QD AT MORNING
  12. VENLAFAXINE HYDROCHLORIDE. [Suspect]
     Active Substance: VENLAFAXINE HYDROCHLORIDE
     Dosage: 75 MG, HS
  13. COPLAVIX [Suspect]
     Active Substance: ASPIRIN\CLOPIDOGREL BISULFATE
     Dosage: UNK UNK, QD 100/75 MG AT MORNING
  14. CLOPIDOGREL BISULFATE. [Suspect]
     Active Substance: CLOPIDOGREL BISULFATE
  15. OMEPRAZOLE. [Suspect]
     Active Substance: OMEPRAZOLE
     Dosage: 40 MG, HS

REACTIONS (13)
  - Body mass index decreased [Unknown]
  - Transient ischaemic attack [Unknown]
  - Chronic obstructive pulmonary disease [Unknown]
  - Blood urea increased [Unknown]
  - Dyslipidaemia [Unknown]
  - Cardiac failure [Unknown]
  - Glomerular filtration rate decreased [Unknown]
  - Ischaemic cardiomyopathy [Unknown]
  - Muscle spasms [Unknown]
  - Abdominal pain [Unknown]
  - Myocardial infarction [Unknown]
  - Diarrhoea [Unknown]
  - Depression [Unknown]

NARRATIVE: CASE EVENT DATE: 2011
